FAERS Safety Report 8021016-2 (Version None)
Quarter: 2011Q4

REPORT INFORMATION
  Report Type: 
  Country: None (occurrence: None)
  Receive Date: 20111228
  Receipt Date: 20111219
  Transmission Date: 20120403
  Serious: Yes (Disabling, Other)
  Sender: FDA-Public Use
  Company Number: 2011MA017907

PATIENT
  Age: 42 Year
  Sex: Male

DRUGS (2)
  1. QUETIAPINE FUMARATE [Suspect]
     Indication: ANXIETY
     Dosage: 300 MG;BID;IHEP
     Route: 025
     Dates: start: 20060801, end: 20110401
  2. CITALOPRAM HYDROBROMIDE [Suspect]
     Indication: DEPRESSION
     Dosage: 40 MG;QD;PO
     Route: 048
     Dates: start: 20091001, end: 20111101

REACTIONS (3)
  - FALL [None]
  - CARDIAC PACEMAKER INSERTION [None]
  - ELECTROCARDIOGRAM QT PROLONGED [None]
